FAERS Safety Report 9507593 (Version 1)
Quarter: 2013Q3

REPORT INFORMATION
  Report Type: Spontaneous
  Country: US (occurrence: US)
  Receive Date: 20130909
  Receipt Date: 20130909
  Transmission Date: 20140515
  Serious: Yes (Other)
  Sender: FDA-Public Use
  Company Number: US-ELI_LILLY_AND_COMPANY-US201308009257

PATIENT
  Sex: Female

DRUGS (3)
  1. CYMBALTA [Suspect]
     Dosage: 30 MG, UNKNOWN
     Route: 065
  2. CYMBALTA [Suspect]
     Dosage: 20 MG, QD
     Route: 065
     Dates: start: 2006
  3. CYMBALTA [Suspect]
     Dosage: 20 MG, QOD
     Dates: start: 201308

REACTIONS (7)
  - Myasthenia gravis [Unknown]
  - Major depression [Unknown]
  - Agitation [Unknown]
  - Anger [Unknown]
  - Irritability [Unknown]
  - Negative thoughts [Unknown]
  - Intentional drug misuse [Unknown]
